FAERS Safety Report 9707289 (Version 1)
Quarter: 2013Q4

REPORT INFORMATION
  Report Type: Spontaneous
  Country: DK (occurrence: DE)
  Receive Date: 20131125
  Receipt Date: 20131125
  Transmission Date: 20140711
  Serious: Yes (Other)
  Sender: FDA-Public Use
  Company Number: DE-FRI-1000051575

PATIENT
  Age: 29 Year
  Sex: Female
  Weight: 60 kg

DRUGS (2)
  1. CITALOPRAM [Suspect]
     Indication: DEPRESSION
     Dosage: 20 MG
     Route: 048
     Dates: start: 20120131, end: 20121030
  2. GYNVITAL GRAVIDA [Suspect]
     Indication: PROPHYLAXIS OF NEURAL TUBE DEFECT
     Dosage: 0.4 MG
     Route: 048
     Dates: start: 20120305, end: 20121030

REACTIONS (4)
  - Gynaecological chlamydia infection [Recovered/Resolved]
  - Premature labour [Recovered/Resolved]
  - Ventouse extraction [Recovered/Resolved]
  - Pregnancy [Recovered/Resolved]
